FAERS Safety Report 7727174-9 (Version None)
Quarter: 2011Q3

REPORT INFORMATION
  Report Type: 
  Country: None (occurrence: None)
  Receive Date: 20110902
  Receipt Date: 20110825
  Transmission Date: 20111222
  Serious: Yes (Hospitalization, Other)
  Sender: FDA-Public Use
  Company Number: US-ELI_LILLY_AND_COMPANY-US201108008127

PATIENT
  Sex: Female

DRUGS (3)
  1. LANTUS [Concomitant]
     Dosage: 13 U, EACH MORNING
  2. HUMALOG [Suspect]
     Dosage: UNK UNK, PRN
     Dates: start: 20060101
  3. HUMALOG [Suspect]
     Indication: DIABETES MELLITUS
     Dosage: 12 U, TID
     Dates: start: 20060101

REACTIONS (3)
  - PANCREATIC CARCINOMA [None]
  - INJECTION SITE HAEMORRHAGE [None]
  - ARTERIAL OCCLUSIVE DISEASE [None]
